FAERS Safety Report 19106679 (Version 4)
Quarter: 2021Q2

REPORT INFORMATION
  Report Type: Report from Study
  Country: None (occurrence: US)
  Receive Date: 20210407
  Receipt Date: 20210518
  Transmission Date: 20210717
  Serious: Yes (Hospitalization, Other)
  Sender: FDA-Public Use
  Company Number: US-ABBVIE-21K-163-3842292-00

PATIENT
  Age: 82 Year
  Sex: Female
  Weight: 81.72 kg

DRUGS (1)
  1. HUMIRA [Suspect]
     Active Substance: ADALIMUMAB
     Indication: PSORIASIS
     Route: 058
     Dates: start: 2018, end: 202104

REACTIONS (24)
  - Coronary artery occlusion [Unknown]
  - Catheter placement [Unknown]
  - Lung disorder [Not Recovered/Not Resolved]
  - Post procedural contusion [Not Recovered/Not Resolved]
  - Memory impairment [Recovered/Resolved]
  - Pruritus [Recovered/Resolved]
  - Angina pectoris [Not Recovered/Not Resolved]
  - Abdominal hernia [Recovered/Resolved]
  - Chronic obstructive pulmonary disease [Not Recovered/Not Resolved]
  - Headache [Recovering/Resolving]
  - Feeling abnormal [Recovered/Resolved]
  - Back pain [Unknown]
  - Pneumonia [Recovered/Resolved]
  - Dyspnoea [Not Recovered/Not Resolved]
  - Post procedural haematoma [Recovered/Resolved]
  - Joint range of motion decreased [Not Recovered/Not Resolved]
  - Arterial stent insertion [Not Recovered/Not Resolved]
  - Pain in extremity [Not Recovered/Not Resolved]
  - Neck pain [Not Recovered/Not Resolved]
  - Illness [Not Recovered/Not Resolved]
  - Procedural complication [Unknown]
  - Lung disorder [Not Recovered/Not Resolved]
  - Arthralgia [Not Recovered/Not Resolved]
  - Contusion [Recovered/Resolved]

NARRATIVE: CASE EVENT DATE: 2018
